FAERS Safety Report 5508953-5 (Version None)
Quarter: 2007Q4

REPORT INFORMATION
  Report Type: 
  Country: None (occurrence: None)
  Receive Date: 20071107
  Receipt Date: 20071030
  Transmission Date: 20080405
  Serious: Yes (Death, Life-Threatening)
  Sender: FDA-Public Use
  Company Number: FR-MERCK-0710FRA00094

PATIENT
  Age: 91 Year
  Sex: Female

DRUGS (3)
  1. INVANZ [Suspect]
     Indication: PERITONITIS
     Route: 042
     Dates: start: 20070925, end: 20070929
  2. ENOXAPARIN SODIUM [Concomitant]
     Indication: THROMBOSIS PROPHYLAXIS
     Route: 065
  3. ESOMEPRAZOLE MAGNESIUM [Concomitant]
     Route: 065

REACTIONS (3)
  - COMA [None]
  - CONVULSION [None]
  - DEATH [None]
